FAERS Safety Report 11255458 (Version 2)
Quarter: 2016Q1

REPORT INFORMATION
  Report Type: Spontaneous
  Country: US (occurrence: US)
  Receive Date: 20150709
  Receipt Date: 20160108
  Transmission Date: 20160525
  Serious: No
  Sender: FDA-Public Use
  Company Number: US-SA-2015SA085196

PATIENT
  Age: 54 Year
  Sex: Male
  Weight: 127 kg

DRUGS (5)
  1. LEVEMIR [Concomitant]
     Active Substance: INSULIN DETEMIR
     Dosage: DOSE:100 UNIT(S)
  2. FENOFIBRATE. [Concomitant]
     Active Substance: FENOFIBRATE
  3. LISINOPRIL. [Concomitant]
     Active Substance: LISINOPRIL
     Dosage: DOSE: 2.5 (UNITS: NOT PROVIDED)
  4. AFREZZA [Suspect]
     Active Substance: INSULIN HUMAN
     Indication: TYPE 2 DIABETES MELLITUS
     Route: 055
     Dates: start: 20150508, end: 20150521
  5. LYRICA [Concomitant]
     Active Substance: PREGABALIN

REACTIONS (4)
  - Cough [Recovered/Resolved]
  - Throat irritation [Unknown]
  - Nasal discomfort [Unknown]
  - Sneezing [Unknown]

NARRATIVE: CASE EVENT DATE: 20150508
